FAERS Safety Report 11422288 (Version 1)
Quarter: 2015Q3

REPORT INFORMATION
  Report Type: Spontaneous
  Country: JP (occurrence: None)
  Receive Date: 20150825
  Receipt Date: 20150825
  Transmission Date: 20151125
  Serious: Yes (Other)
  Sender: FDA-Public Use
  Company Number: GR-2015INT000524

PATIENT

DRUGS (3)
  1. BEVACIZUMAB (BEVACIZUMAB) [Suspect]
     Active Substance: BEVACIZUMAB
     Indication: NON-SMALL CELL LUNG CANCER
     Dosage: DAY 1 EVERY 3 WEEKS
  2. CARBOPLATIN (CARBOPLATIN) [Suspect]
     Active Substance: CARBOPLATIN
     Indication: NON-SMALL CELL LUNG CANCER
     Dosage: DAY 1 EVERY 3 WEEKS
  3. PACLITAXEL (PACLITAXEL) [Suspect]
     Active Substance: PACLITAXEL
     Indication: NON-SMALL CELL LUNG CANCER
     Dosage: DAY 1 EVERY 3 WEEKS

REACTIONS (1)
  - Constipation [None]
